FAERS Safety Report 8395621-8 (Version None)
Quarter: 2012Q2

REPORT INFORMATION
  Report Type: 
  Country: None (occurrence: None)
  Receive Date: 20120530
  Receipt Date: 20111201
  Transmission Date: 20120825
  Serious: No
  Sender: FDA-Public Use
  Company Number: US-GLAXOSMITHKLINE-A0956225A

PATIENT
  Age: 54 Year
  Sex: Female
  Weight: 81.8 kg

DRUGS (2)
  1. VENTOLIN [Suspect]
     Indication: ASTHMA
     Dosage: 2PUFF SINGLE DOSE
     Route: 055
     Dates: start: 20110101, end: 20110101
  2. NO CONCURRENT MEDICATION [Concomitant]

REACTIONS (1)
  - TREMOR [None]
